FAERS Safety Report 17148473 (Version 1)
Quarter: 2019Q4

REPORT INFORMATION
  Report Type: Report from Study
  Country: US (occurrence: US)
  Receive Date: 20191212
  Receipt Date: 20191212
  Transmission Date: 20200122
  Serious: No
  Sender: FDA-Public Use
  Company Number: NVSC2019US064608

PATIENT
  Sex: Female

DRUGS (1)
  1. OMNITROPE [Suspect]
     Active Substance: SOMATROPIN
     Indication: IN VITRO FERTILISATION
     Dosage: UNK, QD
     Route: 058

REACTIONS (4)
  - Product storage error [Unknown]
  - Product use in unapproved indication [Unknown]
  - Needle issue [Unknown]
  - Injection site pain [Unknown]
